FAERS Safety Report 6453680-3 (Version None)
Quarter: 2009Q4

REPORT INFORMATION
  Report Type: 
  Country: None (occurrence: None)
  Receive Date: 20091124
  Receipt Date: 20091118
  Transmission Date: 20100525
  Serious: Yes (Death)
  Sender: FDA-Public Use
  Company Number: PHEH2009US16216

PATIENT
  Sex: Female

DRUGS (9)
  1. GLEEVEC [Suspect]
     Indication: ACUTE MYELOID LEUKAEMIA
     Dosage: 400 MG, QD
     Route: 048
     Dates: start: 20050823
  2. SINGULAIR [Concomitant]
     Dosage: 10 MG, UNK
  3. ZOCOR [Concomitant]
     Dosage: 10 MG, UNK
  4. LASIX [Concomitant]
     Dosage: 20 MG, UNK
  5. TRAZODONE HCL [Concomitant]
     Dosage: 50 MG, UNK
  6. TOPROL-XL [Concomitant]
     Dosage: 50 MG, UNK
  7. POTASSIUM CHLORIDE [Concomitant]
     Dosage: 75 MG, UNK
  8. PLAVIX [Concomitant]
     Dosage: 75 MG, UNK
  9. HECTOROL [Concomitant]
     Dosage: 2.5 MCG, UNK

REACTIONS (1)
  - DEATH [None]
